FAERS Safety Report 8581188-8 (Version None)
Quarter: 2012Q3

REPORT INFORMATION
  Report Type: 
  Country: None (occurrence: None)
  Receive Date: 20120809
  Receipt Date: 20120731
  Transmission Date: 20120928
  Serious: Yes (Hospitalization)
  Sender: FDA-Public Use
  Company Number: US-BAYER-2012-078793

PATIENT
  Age: 25 Year
  Sex: Female
  Weight: 90 kg

DRUGS (7)
  1. VITAMIN D [Concomitant]
  2. YAZ [Suspect]
  3. FLUCONAZOLE [Concomitant]
     Indication: FUNGAL INFECTION
     Dosage: 150 MG, TODAY
  4. MULTI-VITAMINS [Concomitant]
  5. VITAMIN B-12 [Concomitant]
  6. AMOXICILLIN AND CLAVULANATE POTASSIUM [Concomitant]
     Indication: SINUSITIS
     Dosage: 500 MG, BID
  7. METAXALONE [Concomitant]
     Indication: PAIN IN EXTREMITY
     Dosage: 800 MG, TID DAILY

REACTIONS (2)
  - PULMONARY EMBOLISM [None]
  - DEEP VEIN THROMBOSIS [None]
